FAERS Safety Report 4869298-X (Version None)
Quarter: 2005Q4

REPORT INFORMATION
  Report Type: 
  Country: None (occurrence: None)
  Receive Date: 20051227
  Receipt Date: 20051212
  Transmission Date: 20060501
  Serious: Yes (Hospitalization)
  Sender: FDA-Public Use
  Company Number: 2005-133290-NL

PATIENT
  Age: 83 Year
  Sex: Female

DRUGS (5)
  1. MIRTAZAPINE [Suspect]
     Indication: DEPRESSION
     Dosage: 30 MG ORAL
     Route: 048
     Dates: start: 20050919, end: 20051002
  2. DONEPEZIL HCL [Concomitant]
  3. AMLODIPINE [Concomitant]
  4. MEMANTINE HCL [Concomitant]
  5. OMEPRAZOLE [Concomitant]

REACTIONS (3)
  - GENERALISED ERYTHEMA [None]
  - RASH GENERALISED [None]
  - RASH PRURITIC [None]
